FAERS Safety Report 14137595 (Version 1)
Quarter: 2017Q4

REPORT INFORMATION
  Report Type: Spontaneous
  Country: NL (occurrence: NL)
  Receive Date: 20171027
  Receipt Date: 20171027
  Transmission Date: 20180321
  Serious: Yes (Other)
  Sender: FDA-Public Use
  Company Number: NL-TEVA-818259ROM

PATIENT
  Sex: Male

DRUGS (2)
  1. TAMSULOSINE HCL RETARD 0,4 MG TEVA, HARDE CAPSULES MET GEREGULEERDE AF [Suspect]
     Active Substance: TAMSULOSIN
     Dosage: USED FOR 10 YEARS (OTHER BATCH NUMBER)
     Dates: end: 201710
  2. TAMSULOSINE HCL RETARD 0,4 MG TEVA, HARDE CAPSULES MET GEREGULEERDE AF [Suspect]
     Active Substance: TAMSULOSIN
     Dosage: CONTROLLED-RELEASE CAPSULE
     Dates: start: 201710, end: 201710

REACTIONS (2)
  - Product formulation issue [Unknown]
  - Urinary retention [Recovered/Resolved]

NARRATIVE: CASE EVENT DATE: 201710
